FAERS Safety Report 14909043 (Version 1)
Quarter: 2018Q2

REPORT INFORMATION
  Report Type: Report from Study
  Country: TR (occurrence: TR)
  Receive Date: 20180517
  Receipt Date: 20180517
  Transmission Date: 20180711
  Serious: Yes (Death, Life-Threatening)
  Sender: FDA-Public Use
  Company Number: TR-B.I. PHARMACEUTICALS,INC./RIDGEFIELD-2018-BI-026153

PATIENT
  Age: 88 Year
  Sex: Male

DRUGS (2)
  1. PRADAXA [Concomitant]
     Active Substance: DABIGATRAN ETEXILATE MESYLATE
     Indication: PRODUCT USED FOR UNKNOWN INDICATION
     Route: 065
  2. BI 655075 [Suspect]
     Active Substance: IDARUCIZUMAB
     Indication: PROCOAGULANT THERAPY
     Route: 065
     Dates: start: 20180507, end: 20180507

REACTIONS (2)
  - Gastrointestinal haemorrhage [Fatal]
  - Expired product administered [Unknown]

NARRATIVE: CASE EVENT DATE: 201805
